FAERS Safety Report 19571430 (Version 1)
Quarter: 2021Q3

REPORT INFORMATION
  Report Type: Spontaneous
  Country: US (occurrence: US)
  Receive Date: 20210715
  Receipt Date: 20210715
  Transmission Date: 20211014
  Serious: No
  Sender: FDA-Public Use
  Company Number: US-SA-2021SA227259

PATIENT
  Sex: Male
  Weight: 101.15 kg

DRUGS (3)
  1. ATORVASTATIN [Suspect]
     Active Substance: ATORVASTATIN
     Dosage: TAKE 1 TABLET BY MOUTH EVERY DAY 03/17/2021 FILLED
     Route: 048
     Dates: start: 20210317
  2. DETROL LA [Suspect]
     Active Substance: TOLTERODINE TARTRATE
     Dosage: TAKE 1 CAPSULE(S) EVERY DAY BY ORAL ROUTE FOR 30 DAYS 05/17/2021 PRESCRIBED
     Route: 048
     Dates: start: 20210517
  3. FLOMAX [Suspect]
     Active Substance: TAMSULOSIN HYDROCHLORIDE

REACTIONS (5)
  - Urinary incontinence [Unknown]
  - Hyperlipidaemia [Unknown]
  - Essential hypertension [Unknown]
  - Overweight [Unknown]
  - Drug ineffective [Unknown]

NARRATIVE: CASE EVENT DATE: 20210517
